FAERS Safety Report 6366787-6 (Version None)
Quarter: 2009Q3

REPORT INFORMATION
  Report Type: 
  Country: None (occurrence: None)
  Receive Date: 20090921
  Receipt Date: 20090909
  Transmission Date: 20100115
  Serious: Yes (Life-Threatening, Hospitalization, Disabling)
  Sender: FDA-Public Use
  Company Number: NL-ROCHE-590076

PATIENT
  Weight: 54.4 kg

DRUGS (16)
  1. CAPECITABINE [Suspect]
     Indication: GASTRIC CANCER
     Dosage: 1000 MG/M2 TWICE/DAY, FROM DAY 1-14 EVERY THREE WEEKS WITH A MEAL, DOSAGE PER PROTOCOL.
     Route: 048
     Dates: start: 20080626, end: 20081215
  2. EPIRUBICIN [Suspect]
     Indication: GASTRIC CANCER
     Dosage: ON DAY 1 EVERY THREE WEEKS, DOSAGE PER PROTOCOL.
     Route: 042
     Dates: end: 20080828
  3. CISPLATIN [Suspect]
     Indication: GASTRIC CANCER
     Dosage: ON DAY 1 EVERY THREE WEEKS, DOSAGE PER PROTOCOL.
     Route: 042
     Dates: end: 20080828
  4. MEROPENEM [Concomitant]
  5. PIPERACILLIN SODIUM AND TAZOBACTAM SODIUM [Concomitant]
  6. GENTAMICIN [Concomitant]
  7. OMEPRAZOLE [Concomitant]
     Route: 048
     Dates: start: 20090227
  8. BISOPROLOL [Concomitant]
     Route: 048
     Dates: start: 20090130
  9. ZOPICLON [Concomitant]
     Dosage: DOSE : 5 MG WHEN NEEDED, DRUG NAME : ZOPIKLON
     Route: 048
     Dates: start: 20090227
  10. PROPIOMAZINE [Concomitant]
     Dosage: DOSE : 25 MG / NIGHT
  11. BETAMETHASON [Concomitant]
     Dosage: REPORTED AS 27 OCT 2008 (WITH 30 MG/DAY)
     Dates: start: 20081027
  12. LOPERAMIDE [Concomitant]
     Dosage: FREQUENCY : WHEN NEEDED.
     Dates: start: 20081107
  13. INOLAXOL [Concomitant]
     Dosage: DOSE : 6 DOSE CACHET/DAY
     Dates: start: 20081107
  14. SUKRALFAT [Concomitant]
     Dosage: DRUG NAME : MIXTURE SUKRALFAT
     Dates: start: 20081107
  15. NYSTATIN [Concomitant]
     Dosage: DRUG NAME : ORAL MIXTURE NYSTATIN
     Dates: start: 20081107
  16. OPIUM [Concomitant]
     Dosage: DRUG GIVEN AS OPIUM TINCTURE, DOSE: MAXIMUM 6.8 ML DAILY.
     Route: 048
     Dates: start: 20090130

REACTIONS (4)
  - ANASTOMOTIC ULCER [None]
  - PNEUMONIA ASPIRATION [None]
  - PULMONARY EMBOLISM [None]
  - TUBULOINTERSTITIAL NEPHRITIS [None]
